FAERS Safety Report 6675086-4 (Version None)
Quarter: 2010Q2

REPORT INFORMATION
  Report Type: 
  Country: None (occurrence: None)
  Receive Date: 20100407
  Receipt Date: 20100323
  Transmission Date: 20101027
  Serious: Yes (Hospitalization)
  Sender: FDA-Public Use
  Company Number: 2010PV000011

PATIENT
  Age: 7 Year
  Sex: Female

DRUGS (1)
  1. DEPOCYT [Suspect]
     Indication: BURKITT'S LEUKAEMIA
     Dosage: INTH
     Route: 037
     Dates: start: 20090824, end: 20090911

REACTIONS (3)
  - HYPERTONIA [None]
  - TREMOR [None]
  - UNEVALUABLE EVENT [None]
